FAERS Safety Report 18335052 (Version 1)
Quarter: 2020Q4

REPORT INFORMATION
  Report Type: Spontaneous
  Country: US (occurrence: US)
  Receive Date: 20201001
  Receipt Date: 20201001
  Transmission Date: 20210113
  Serious: Yes (Hospitalization, Other)
  Sender: FDA-Public Use
  Company Number: US-PFIZER INC-2020376985

PATIENT
  Sex: Female

DRUGS (2)
  1. PRISTIQ EXTENDED-RELEASE [Suspect]
     Active Substance: DESVENLAFAXINE SUCCINATE
     Indication: DEPRESSION
     Dosage: 50 MG, 1X/DAY
     Route: 048
  2. PRISTIQ EXTENDED-RELEASE [Suspect]
     Active Substance: DESVENLAFAXINE SUCCINATE
     Dosage: 100 MG, 1X/DAY
     Route: 048

REACTIONS (13)
  - Illness [Not Recovered/Not Resolved]
  - Emotional distress [Unknown]
  - Arthralgia [Unknown]
  - Myalgia [Unknown]
  - Aggression [Unknown]
  - Headache [Unknown]
  - Pain [Unknown]
  - Agitation [Unknown]
  - Cerebral disorder [Unknown]
  - Inflammatory marker increased [Unknown]
  - Suicidal ideation [Unknown]
  - Anger [Unknown]
  - Withdrawal syndrome [Not Recovered/Not Resolved]
